FAERS Safety Report 20720839 (Version 2)
Quarter: 2022Q2

REPORT INFORMATION
  Report Type: Report from Study
  Country: US (occurrence: US)
  Receive Date: 20220418
  Receipt Date: 20220421
  Transmission Date: 20220721
  Serious: No
  Sender: FDA-Public Use
  Company Number: US-BIOVITRUM-2022US05044

PATIENT
  Sex: Female

DRUGS (15)
  1. KINERET [Suspect]
     Active Substance: ANAKINRA
     Indication: Rheumatoid arthritis
     Route: 058
     Dates: start: 20220322, end: 20220408
  2. VITAMIN D [Concomitant]
     Active Substance: VITAMIN D NOS
  3. TIMOPTIC [Concomitant]
     Active Substance: TIMOLOL MALEATE
  4. FLONASE [Concomitant]
     Active Substance: FLUTICASONE PROPIONATE
  5. VITAMIN C [Concomitant]
     Active Substance: ASCORBIC ACID
  6. LAMICTAL [Concomitant]
     Active Substance: LAMOTRIGINE
  7. XALATAN [Concomitant]
     Active Substance: LATANOPROST
  8. FLEXERIL [Concomitant]
     Active Substance: CYCLOBENZAPRINE HYDROCHLORIDE
  9. METHYLPREDNISOLONE [Concomitant]
     Active Substance: METHYLPREDNISOLONE
  10. CALCIUM [Concomitant]
     Active Substance: CALCIUM
  11. PLAQUENIL [Concomitant]
     Active Substance: HYDROXYCHLOROQUINE SULFATE
  12. LEVOTHYROXINE [Concomitant]
     Active Substance: LEVOTHYROXINE
  13. ELIQUIS [Concomitant]
     Active Substance: APIXABAN
  14. OMEPRAZOLE [Concomitant]
     Active Substance: OMEPRAZOLE
  15. TRAMADOL [Concomitant]
     Active Substance: TRAMADOL

REACTIONS (4)
  - White blood cell count abnormal [Unknown]
  - Blood cholesterol increased [Unknown]
  - Hepatic enzyme increased [Unknown]
  - Injection site rash [Unknown]
